FAERS Safety Report 23558624 (Version 3)
Quarter: 2024Q2

REPORT INFORMATION
  Report Type: Spontaneous
  Country: US (occurrence: US)
  Receive Date: 20240223
  Receipt Date: 20240429
  Transmission Date: 20240715
  Serious: No
  Sender: FDA-Public Use
  Company Number: US-Blueprint Medicines Corporation-2476

PATIENT
  Sex: Female

DRUGS (2)
  1. AYVAKIT [Suspect]
     Active Substance: AVAPRITINIB
     Indication: Advanced systemic mastocytosis
     Route: 048
     Dates: start: 20230119
  2. AYVAKIT [Suspect]
     Active Substance: AVAPRITINIB
     Indication: Systemic mastocytosis

REACTIONS (9)
  - Lip swelling [Recovered/Resolved]
  - Throat tightness [Recovered/Resolved]
  - Fungal infection [Unknown]
  - Genital discomfort [Unknown]
  - Renal disorder [Unknown]
  - Menopause [Unknown]
  - Nausea [Unknown]
  - Product dose omission issue [Unknown]
  - Food allergy [Recovered/Resolved]
